FAERS Safety Report 16698640 (Version 2)
Quarter: 2019Q3

REPORT INFORMATION
  Report Type: Spontaneous
  Country: FR (occurrence: FR)
  Receive Date: 20190813
  Receipt Date: 20190903
  Transmission Date: 20191004
  Serious: Yes (Death)
  Sender: FDA-Public Use
  Company Number: FR-MYLANLABS-2019M1075541

PATIENT
  Age: 77 Year
  Sex: Male
  Weight: 93 kg

DRUGS (9)
  1. ALPRAZOLAM. [Suspect]
     Active Substance: ALPRAZOLAM
     Indication: AGITATION
     Dosage: 1 DOSAGE FORM
     Route: 048
     Dates: start: 20190219, end: 20190219
  2. RISPERIDONE. [Suspect]
     Active Substance: RISPERIDONE
     Indication: AGITATION
     Dosage: 1 DOSAGE FORM
     Route: 048
     Dates: start: 20190219, end: 20190219
  3. ALLOPURINOL. [Suspect]
     Active Substance: ALLOPURINOL
     Indication: TUMOUR LYSIS SYNDROME
     Dosage: 100 MILLIGRAM, QD
     Route: 065
     Dates: start: 20190201, end: 20190219
  4. CHLORAMBUCIL [Suspect]
     Active Substance: CHLORAMBUCIL
     Indication: CHRONIC LYMPHOCYTIC LEUKAEMIA
     Dosage: 46 MILLIGRAM, QD
     Route: 048
     Dates: start: 20190219, end: 20190219
  5. VINCRISTINE [Suspect]
     Active Substance: VINCRISTINE
     Indication: CHRONIC LYMPHOCYTIC LEUKAEMIA
     Dosage: 2 MILLIGRAM, TOTAL
     Route: 042
     Dates: start: 20190213, end: 20190213
  6. ENDOXAN                            /00021101/ [Suspect]
     Active Substance: CYCLOPHOSPHAMIDE
     Indication: CHRONIC LYMPHOCYTIC LEUKAEMIA
     Dosage: 500 MILLIGRAM, QD
     Route: 042
     Dates: start: 20190213, end: 20190213
  7. GAZYVARO [Suspect]
     Active Substance: OBINUTUZUMAB
     Indication: CHRONIC LYMPHOCYTIC LEUKAEMIA
     Dosage: 100 MILLIGRAM, TOTAL
     Route: 042
     Dates: start: 20190219, end: 20190219
  8. CHLORAMBUCIL [Suspect]
     Active Substance: CHLORAMBUCIL
     Dosage: 46.5 MILLIGRAM, QD
     Route: 048
     Dates: start: 20190201, end: 20190219
  9. FIRMAGON [Concomitant]
     Active Substance: DEGARELIX ACETATE
     Dosage: UNK

REACTIONS (2)
  - Sudden death [Fatal]
  - Agitation [Unknown]

NARRATIVE: CASE EVENT DATE: 20190213
